FAERS Safety Report 6944926-3 (Version None)
Quarter: 2010Q3

REPORT INFORMATION
  Report Type: 
  Country: None (occurrence: None)
  Receive Date: 20100827
  Receipt Date: 20100823
  Transmission Date: 20110219
  Serious: Yes (Other)
  Sender: FDA-Public Use
  Company Number: CHPA2010US13666

PATIENT
  Age: 83 Year
  Sex: Female
  Weight: 68.934 kg

DRUGS (1)
  1. TRANSDERM SCOP [Suspect]
     Dosage: 1 PATCH EVERY 72 HOURS
     Route: 062
     Dates: start: 20100820, end: 20100823

REACTIONS (5)
  - COGNITIVE DISORDER [None]
  - CONFUSIONAL STATE [None]
  - HALLUCINATION [None]
  - LETHARGY [None]
  - PSYCHOTIC DISORDER [None]
